FAERS Safety Report 20298825 (Version 2)
Quarter: 2022Q1

REPORT INFORMATION
  Report Type: Spontaneous
  Country: AU (occurrence: AU)
  Receive Date: 20220105
  Receipt Date: 20220224
  Transmission Date: 20220423
  Serious: Yes (Hospitalization)
  Sender: FDA-Public Use
  Company Number: AU-NOVARTISPH-NVSC2021AU290768

PATIENT
  Sex: Female

DRUGS (1)
  1. EXELON [Suspect]
     Active Substance: RIVASTIGMINE TARTRATE
     Indication: Product used for unknown indication
     Dosage: UNK
     Route: 065

REACTIONS (9)
  - Heat stroke [Unknown]
  - Dehydration [Recovered/Resolved]
  - Syncope [Unknown]
  - Hypotension [Unknown]
  - Fatigue [Unknown]
  - Nausea [Unknown]
  - Illness [Unknown]
  - Muscle spasms [Unknown]
  - Blood glucose decreased [Unknown]
